FAERS Safety Report 23821563 (Version 1)
Quarter: 2024Q2

REPORT INFORMATION
  Report Type: Spontaneous
  Country: US (occurrence: None)
  Receive Date: 20240505
  Receipt Date: 20240505
  Transmission Date: 20240715
  Serious: Yes (Life-Threatening)
  Sender: FDA-Public Use
  Company Number: None

PATIENT
  Age: 33 Year
  Sex: Male
  Weight: 74.25 kg

DRUGS (1)
  1. OTEZLA [Suspect]
     Active Substance: APREMILAST
     Indication: Psoriasis
     Dates: start: 20230410, end: 20230621

REACTIONS (2)
  - Suicidal ideation [None]
  - General physical health deterioration [None]

NARRATIVE: CASE EVENT DATE: 20230613
